FAERS Safety Report 21098007 (Version 2)
Quarter: 2022Q3

REPORT INFORMATION
  Report Type: Report from Study
  Country: US (occurrence: None)
  Receive Date: 20220719
  Receipt Date: 20220908
  Transmission Date: 20221026
  Serious: Yes (Other)
  Sender: FDA-Public Use
  Company Number: US-Merck Healthcare KGaA-9336880

PATIENT
  Age: 59 Year
  Sex: Female

DRUGS (1)
  1. REBIF [Suspect]
     Active Substance: INTERFERON BETA-1A
     Indication: Multiple sclerosis
     Route: 058
     Dates: start: 20051017

REACTIONS (4)
  - Spinal fusion surgery [Unknown]
  - Intervertebral disc degeneration [Recovering/Resolving]
  - Sciatica [Recovering/Resolving]
  - Grip strength decreased [Unknown]

NARRATIVE: CASE EVENT DATE: 20150101
